FAERS Safety Report 4989357-0 (Version None)
Quarter: 2006Q2

REPORT INFORMATION
  Report Type: 
  Country: None (occurrence: None)
  Receive Date: 20060426
  Receipt Date: 20060415
  Transmission Date: 20061013
  Serious: Yes (Other)
  Sender: FDA-Public Use
  Company Number: 2005124799

PATIENT
  Age: 33 Year
  Sex: Female
  Weight: 59.8748 kg

DRUGS (3)
  1. ZOLOFT [Suspect]
     Indication: PANIC DISORDER
     Dosage: 150 MG (1 IN 1 D), ORAL
     Route: 048
     Dates: start: 20050401, end: 20050801
  2. VITAMIN C (VITAMIN C) [Concomitant]
  3. CALCIUM (CALCIUM) [Concomitant]

REACTIONS (9)
  - DIZZINESS [None]
  - DRUG HYPERSENSITIVITY [None]
  - DRUG LEVEL INCREASED [None]
  - ENDOMETRIOSIS [None]
  - INTERNATIONAL NORMALISED RATIO DECREASED [None]
  - OVARIAN CYST [None]
  - PALPITATIONS [None]
  - PRURITUS [None]
  - UTERINE POLYP [None]
